FAERS Safety Report 6532036-9 (Version None)
Quarter: 2010Q1

REPORT INFORMATION
  Report Type: 
  Country: None (occurrence: None)
  Receive Date: 20100107
  Receipt Date: 20100107
  Transmission Date: 20100710
  Serious: Yes (Life-Threatening)
  Sender: FDA-Public Use
  Company Number: None

PATIENT
  Age: 39 Year
  Sex: Female
  Weight: 61.2356 kg

DRUGS (1)
  1. FLUCONAZOLE [Suspect]
     Indication: FUNGAL INFECTION
     Dosage: 1 TABLET PO
     Route: 048
     Dates: start: 20091231, end: 20091231

REACTIONS (9)
  - ANORECTAL DISORDER [None]
  - BLISTER [None]
  - DRUG HYPERSENSITIVITY [None]
  - GLOSSODYNIA [None]
  - INFLAMMATION [None]
  - OROPHARYNGEAL BLISTERING [None]
  - OROPHARYNGEAL PAIN [None]
  - PAIN [None]
  - VAGINAL MUCOSAL BLISTERING [None]
